FAERS Safety Report 17023738 (Version 1)
Quarter: 2019Q4

REPORT INFORMATION
  Report Type: Spontaneous
  Country: FI (occurrence: FI)
  Receive Date: 20191113
  Receipt Date: 20191113
  Transmission Date: 20200122
  Serious: Yes (Other)
  Sender: FDA-Public Use
  Company Number: FI-AMGEN-FINSP2019185898

PATIENT

DRUGS (3)
  1. CLOZAPINE. [Concomitant]
     Active Substance: CLOZAPINE
     Indication: SCHIZOPHRENIA
     Dosage: UNK
  2. FILGRASTIM [Suspect]
     Active Substance: FILGRASTIM
     Indication: AGRANULOCYTOSIS
  3. FILGRASTIM [Suspect]
     Active Substance: FILGRASTIM
     Indication: GRANULOCYTOPENIA
     Dosage: 0.3 MILLIGRAM, QWK
     Route: 065

REACTIONS (4)
  - Epiglottitis [Recovered/Resolved]
  - Off label use [Unknown]
  - Sepsis [Recovered/Resolved]
  - Peritonsillitis [Recovered/Resolved]
